FAERS Safety Report 7029897-6 (Version None)
Quarter: 2010Q4

REPORT INFORMATION
  Report Type: 
  Country: None (occurrence: None)
  Receive Date: 20101006
  Receipt Date: 20100713
  Transmission Date: 20110411
  Serious: Yes (Other)
  Sender: FDA-Public Use
  Company Number: US-BAYER-200827514NA

PATIENT
  Age: 69 Year
  Sex: Female
  Weight: 58 kg

DRUGS (9)
  1. CLIMARA [Suspect]
     Indication: NIGHT SWEATS
     Route: 062
     Dates: start: 19980101, end: 19990101
  2. ESTRACE [Suspect]
     Indication: MENOPAUSE
     Dates: start: 19980101, end: 19990101
  3. PREMARIN [Suspect]
     Indication: MENOPAUSE
     Dates: start: 19820101, end: 20020101
  4. PREMPRO [Suspect]
     Indication: MENOPAUSE
     Dosage: AS USED: 0.625/2.5 MG
     Dates: start: 19990101, end: 20020101
  5. PROGESTERONE [Suspect]
     Indication: PRODUCT USED FOR UNKNOWN INDICATION
  6. FOSAMAX [Concomitant]
     Indication: OSTEOPOROSIS
  7. TRAMADOL HCL [Concomitant]
     Dosage: 1 TABLET EVERY 4-6 HOURS
  8. HYOSCYAMINE [Concomitant]
     Indication: MUSCLE SPASMS
     Dosage: 0.125 MG SUBLINGUAL
  9. HYDROCODONE BITARTRATE AND ACETAMINOPHEN [Concomitant]
     Indication: PAIN
     Dosage: 5MG/ 50MG 1-2 TABLETS EVERY 4-6 HRS

REACTIONS (2)
  - BENIGN BREAST NEOPLASM [None]
  - BREAST CANCER [None]
